FAERS Safety Report 10162693 (Version 2)
Quarter: 2014Q2

REPORT INFORMATION
  Report Type: Spontaneous
  Country: GB (occurrence: GB)
  Receive Date: 20140509
  Receipt Date: 20140509
  Transmission Date: 20141212
  Serious: Yes (Other)
  Sender: FDA-Public Use
  Company Number: PHFR2011GB00480

PATIENT
  Age: 50 Year
  Sex: Female
  Weight: 63.2 kg

DRUGS (6)
  1. CLOZARIL [Suspect]
     Indication: SCHIZOPHRENIA
     Dosage: UNK
     Route: 048
     Dates: start: 20090225, end: 20101214
  2. CLOZARIL [Suspect]
     Dosage: UNK
     Route: 048
     Dates: start: 20101220
  3. CLOZARIL [Suspect]
     Dosage: 250 MG DAILY
     Route: 048
  4. LEVOTHYROXINE [Concomitant]
     Indication: HYPOTHYROIDISM
     Dosage: 150 UG/DAY
     Route: 048
  5. PROCYCLIDINE [Concomitant]
     Indication: EXTRAPYRAMIDAL DISORDER
     Dosage: 5 MG/DAY
     Dates: end: 20110112
  6. HALOPERIDOL [Concomitant]
     Dosage: 10 MG, DAILY
     Route: 048

REACTIONS (3)
  - Haemoglobin decreased [Not Recovered/Not Resolved]
  - White blood cell count increased [Unknown]
  - Platelet count increased [Unknown]
